FAERS Safety Report 7486508-3 (Version None)
Quarter: 2011Q2

REPORT INFORMATION
  Report Type: 
  Country: None (occurrence: None)
  Receive Date: 20110517
  Receipt Date: 20100520
  Transmission Date: 20111010
  Serious: No
  Sender: FDA-Public Use
  Company Number: US-NOVEN-ALL1-2010-02950

PATIENT

DRUGS (2)
  1. DAYTRANA [Suspect]
     Dosage: 20 MG, 1X/DAY:QD
     Route: 062
     Dates: start: 20100422
  2. DAYTRANA [Suspect]
     Dosage: 10 MG, 1X/DAY:QD
     Route: 062
     Dates: start: 20100415, end: 20100421

REACTIONS (8)
  - APPLICATION SITE PAIN [None]
  - PRODUCT QUALITY ISSUE [None]
  - REBOUND EFFECT [None]
  - NASAL CONGESTION [None]
  - CONDITION AGGRAVATED [None]
  - APPLICATION SITE IRRITATION [None]
  - DRUG EFFECT DECREASED [None]
  - OFF LABEL USE [None]
